FAERS Safety Report 9105008 (Version 3)
Quarter: 2013Q2

REPORT INFORMATION
  Report Type: Spontaneous
  Country: US (occurrence: US)
  Receive Date: 20130219
  Receipt Date: 20130520
  Transmission Date: 20140414
  Serious: Yes (Hospitalization)
  Sender: FDA-Public Use
  Company Number: US-ASTELLAS-2013US001771

PATIENT
  Age: 70 Year
  Sex: Male

DRUGS (1)
  1. PROGRAF [Suspect]
     Indication: RENAL TRANSPLANT
     Dosage: 1 MG IN THE MORNING /1.5 MG IN THE EVENING
     Route: 048
     Dates: start: 20120605

REACTIONS (1)
  - Aneurysm [Recovered/Resolved]
